FAERS Safety Report 16205420 (Version 1)
Quarter: 2019Q2

REPORT INFORMATION
  Report Type: Spontaneous
  Country: NL (occurrence: NL)
  Receive Date: 20190417
  Receipt Date: 20190417
  Transmission Date: 20190711
  Serious: Yes (Other)
  Sender: FDA-Public Use
  Company Number: NL-EMD SERONO-9085373

PATIENT
  Sex: Female

DRUGS (2)
  1. GONAL-F [Suspect]
     Active Substance: FOLLITROPIN
     Indication: OVULATION INDUCTION
     Dosage: FIRST IVG ATTEMPT
     Dates: start: 2018
  2. GONAL-F [Suspect]
     Active Substance: FOLLITROPIN
     Dosage: FRESH THERAPY

REACTIONS (1)
  - Abortion spontaneous [Recovered/Resolved]
